FAERS Safety Report 10045439 (Version 5)
Quarter: 2014Q4

REPORT INFORMATION
  Report Type: Spontaneous
  Country: DE (occurrence: DE)
  Receive Date: 20140328
  Receipt Date: 20141027
  Transmission Date: 20150528
  Serious: Yes (Death, Other)
  Sender: FDA-Public Use
  Company Number: DE-OTSUKA-EU-2014-10008

PATIENT

DRUGS (5)
  1. ACETYLSALICYLIC ACID [Concomitant]
     Active Substance: ASPIRIN
     Indication: CAROTID ARTERY STENOSIS
     Dosage: 100 MG MILLIGRAM(S), DAILY DOSE
     Route: 048
  2. PANTOPRAZOLE [Concomitant]
     Active Substance: PANTOPRAZOLE SODIUM
     Indication: PROPHYLAXIS
     Dosage: 40 MG MILLIGRAM(S), DAILY DOSE
     Route: 048
  3. EZETROL [Concomitant]
     Active Substance: EZETIMIBE
     Indication: HYPERCHOLESTEROLAEMIA
     Dosage: UNK, UNKNOWN
     Route: 048
  4. PLETAL [Suspect]
     Active Substance: CILOSTAZOL
     Indication: INTERMITTENT CLAUDICATION
     Dosage: 50 MG MILLIGRAM(S), DAILY DOSE
     Route: 048
     Dates: start: 20131007, end: 20131027
  5. PLETAL [Suspect]
     Active Substance: CILOSTAZOL
     Indication: PERIPHERAL ARTERIAL OCCLUSIVE DISEASE

REACTIONS (16)
  - Joint swelling [Not Recovered/Not Resolved]
  - Hyperaesthesia [Not Recovered/Not Resolved]
  - Flatulence [Unknown]
  - Cerebral disorder [Unknown]
  - Hypoaesthesia [Not Recovered/Not Resolved]
  - Prescribed underdose [Unknown]
  - Heart rate increased [Not Recovered/Not Resolved]
  - Headache [Unknown]
  - Cervicobrachial syndrome [Unknown]
  - Eructation [Not Recovered/Not Resolved]
  - Asthenia [Recovered/Resolved]
  - Polyneuropathy [Fatal]
  - Sleep disorder [Not Recovered/Not Resolved]
  - Tinnitus [Recovered/Resolved]
  - Off label use [Unknown]
  - Movement disorder [Not Recovered/Not Resolved]

NARRATIVE: CASE EVENT DATE: 201310
